FAERS Safety Report 17453088 (Version 1)
Quarter: 2020Q1

REPORT INFORMATION
  Report Type: Spontaneous
  Country: TR (occurrence: TR)
  Receive Date: 20200224
  Receipt Date: 20200224
  Transmission Date: 20200409
  Serious: Yes (Death)
  Sender: FDA-Public Use
  Company Number: TR-NOVOPROD-713571

PATIENT
  Age: 4 Year
  Sex: Male

DRUGS (1)
  1. NOVOSEVEN [Suspect]
     Active Substance: COAGULATION FACTOR VIIA RECOMBINANT HUMAN
     Indication: PROPHYLAXIS
     Dosage: 1 MG/D, TIW
     Route: 065
     Dates: start: 20170101, end: 20190702

REACTIONS (2)
  - Traumatic haemorrhage [Fatal]
  - Off label use [Unknown]
